FAERS Safety Report 5352839-6 (Version None)
Quarter: 2007Q2

REPORT INFORMATION
  Report Type: 
  Country: None (occurrence: None)
  Receive Date: 20070611
  Receipt Date: 20070530
  Transmission Date: 20071010
  Serious: Yes (Hospitalization)
  Sender: FDA-Public Use
  Company Number: CZ-ELI_LILLY_AND_COMPANY-CZ200703002472

PATIENT
  Age: 1 Day
  Sex: Female
  Weight: 3.61 kg

DRUGS (1)
  1. ZYPREXA [Suspect]
     Dosage: UNK, UNK
     Route: 064
     Dates: start: 20040920, end: 20061102

REACTIONS (2)
  - DRUG EXPOSURE DURING PREGNANCY [None]
  - DRUG WITHDRAWAL SYNDROME NEONATAL [None]
